FAERS Safety Report 7555991-7 (Version None)
Quarter: 2011Q2

REPORT INFORMATION
  Report Type: 
  Country: None (occurrence: None)
  Receive Date: 20110620
  Receipt Date: 20110616
  Transmission Date: 20111010
  Serious: Yes (Hospitalization)
  Sender: FDA-Public Use
  Company Number: BE-BRISTOL-MYERS SQUIBB COMPANY-15838451

PATIENT
  Age: 52 Year
  Sex: Female
  Weight: 72 kg

DRUGS (5)
  1. CETUXIMAB [Suspect]
     Indication: NON-SMALL CELL LUNG CANCER
     Dosage: PRODUCT STRENGTH IS 5MG/ML DAYS 1,8 AND 15 OF EACH 3 WEEKS
     Route: 042
     Dates: start: 20110531, end: 20110531
  2. VOLTAREN [Suspect]
     Indication: PAIN IN EXTREMITY
     Dates: start: 20110401, end: 20110604
  3. CISPLATIN [Suspect]
     Indication: NON-SMALL CELL LUNG CANCER
     Dosage: 85MG/M2 ON DAY1 IS ALSO TAKEN
     Route: 042
     Dates: start: 20110531, end: 20110531
  4. CILENGITIDE [Suspect]
     Indication: NON-SMALL CELL LUNG CANCER
     Route: 042
     Dates: start: 20110531, end: 20110531
  5. GEMCITABINE [Suspect]
     Indication: NON-SMALL CELL LUNG CANCER
     Dosage: DAY 1 AND DAY 8 OF EACH 3-WEEK CYCLE
     Route: 042
     Dates: start: 20110531, end: 20110531

REACTIONS (1)
  - LARGE INTESTINE PERFORATION [None]
